FAERS Safety Report 19217550 (Version 1)
Quarter: 2021Q2

REPORT INFORMATION
  Report Type: Spontaneous
  Country: US (occurrence: US)
  Receive Date: 20210505
  Receipt Date: 20210505
  Transmission Date: 20210717
  Serious: No
  Sender: FDA-Public Use
  Company Number: US-CADILA HEALTHCARE LIMITED-US-ZYDUS-053843

PATIENT
  Sex: Male

DRUGS (1)
  1. PAROXETINE 20 MILLIGRAM TABLET [Suspect]
     Active Substance: PAROXETINE
     Indication: PRODUCT USED FOR UNKNOWN INDICATION
     Dosage: UNK
     Route: 065
     Dates: end: 2020

REACTIONS (3)
  - Pain [Unknown]
  - Chest discomfort [Unknown]
  - Gynaecomastia [Unknown]
